FAERS Safety Report 19890363 (Version 2)
Quarter: 2021Q4

REPORT INFORMATION
  Report Type: Spontaneous
  Country: CA (occurrence: CA)
  Receive Date: 20210927
  Receipt Date: 20211122
  Transmission Date: 20220303
  Serious: Yes (Other)
  Sender: FDA-Public Use
  Company Number: CA-ELI_LILLY_AND_COMPANY-CA202109005147

PATIENT
  Age: 66 Year
  Sex: Female
  Weight: 65.76 kg

DRUGS (1)
  1. GALCANEZUMAB [Suspect]
     Active Substance: GALCANEZUMAB
     Indication: Migraine
     Dosage: UNK, UNKNOWN
     Route: 058
     Dates: start: 2020, end: 20210921

REACTIONS (3)
  - Angina pectoris [Recovering/Resolving]
  - Arrhythmia [Recovering/Resolving]
  - Blood pressure increased [Recovering/Resolving]
